FAERS Safety Report 15698846 (Version 1)
Quarter: 2018Q4

REPORT INFORMATION
  Report Type: Spontaneous
  Country: US (occurrence: US)
  Receive Date: 20181207
  Receipt Date: 20181207
  Transmission Date: 20190205
  Serious: Yes (Other)
  Sender: FDA-Public Use
  Company Number: US-ELI_LILLY_AND_COMPANY-US201812000844

PATIENT
  Age: 52 Year
  Sex: Female

DRUGS (4)
  1. HUMALOG [Suspect]
     Active Substance: INSULIN LISPRO
     Indication: PRODUCT USED FOR UNKNOWN INDICATION
     Dosage: 40 U, UNKNOWN
     Route: 058
  2. TRESIBA [Concomitant]
     Active Substance: INSULIN DEGLUDEC
     Indication: PRODUCT USED FOR UNKNOWN INDICATION
  3. HUMALOG [Suspect]
     Active Substance: INSULIN LISPRO
     Dosage: 40 U, UNKNOWN
     Route: 058
  4. HUMALOG [Suspect]
     Active Substance: INSULIN LISPRO
     Dosage: 40 U, UNKNOWN
     Route: 058

REACTIONS (11)
  - Blood cholesterol increased [Unknown]
  - Visual impairment [Unknown]
  - Product dose omission [Unknown]
  - Blood pressure increased [Unknown]
  - Blood glucose increased [Unknown]
  - Carpal tunnel syndrome [Unknown]
  - Fall [Unknown]
  - Hypoaesthesia [Unknown]
  - Pain in extremity [Unknown]
  - Loss of consciousness [Unknown]
  - Limb injury [Unknown]

NARRATIVE: CASE EVENT DATE: 201811
